FAERS Safety Report 7690169-8 (Version None)
Quarter: 2011Q3

REPORT INFORMATION
  Report Type: 
  Country: None (occurrence: None)
  Receive Date: 20110818
  Receipt Date: 20110808
  Transmission Date: 20111222
  Serious: Yes (Hospitalization)
  Sender: FDA-Public Use
  Company Number: CA-JNJFOC-20110805269

PATIENT
  Sex: Female
  Weight: 70 kg

DRUGS (1)
  1. REMICADE [Suspect]
     Indication: CROHN'S DISEASE
     Route: 042

REACTIONS (4)
  - HYPOKALAEMIA [None]
  - PNEUMONIA [None]
  - HYPOMAGNESAEMIA [None]
  - KIDNEY INFECTION [None]
